FAERS Safety Report 8087216-0 (Version None)
Quarter: 2012Q1

REPORT INFORMATION
  Report Type: 
  Country: None (occurrence: None)
  Receive Date: 20120128
  Receipt Date: 20110427
  Transmission Date: 20120608
  Serious: No
  Sender: FDA-Public Use
  Company Number: US-ABBOTT-11P-163-0722064-00

PATIENT
  Age: 52 Year
  Sex: Female

DRUGS (4)
  1. HUMIRA [Suspect]
  2. KEPPRA [Concomitant]
     Indication: CONVULSION
     Dosage: DAILY
     Route: 048
  3. HUMIRA [Suspect]
     Indication: PSORIATIC ARTHROPATHY
     Dates: start: 20101101
  4. LYRICA [Concomitant]
     Indication: FIBROMYALGIA
     Dosage: DAILY
     Route: 048

REACTIONS (2)
  - PSORIATIC ARTHROPATHY [None]
  - PSORIASIS [None]
